FAERS Safety Report 8095408-X (Version None)
Quarter: 2012Q1

REPORT INFORMATION
  Report Type: 
  Country: None (occurrence: None)
  Receive Date: 20120131
  Receipt Date: 20120126
  Transmission Date: 20120608
  Serious: Yes (Hospitalization)
  Sender: FDA-Public Use
  Company Number: US-PFIZER INC-K200900799

PATIENT
  Age: 69 Year
  Sex: Female

DRUGS (4)
  1. METAMIZOL [Concomitant]
     Indication: PAIN
     Dosage: 1000 MG, UNK
     Route: 048
     Dates: end: 20090311
  2. DIPIPERON [Suspect]
     Indication: KORSAKOFF'S SYNDROME
     Dosage: 120 MG, 1X/DAY
     Route: 048
     Dates: start: 20090315, end: 20090316
  3. ALTACE [Suspect]
     Indication: HYPERTENSION
     Dosage: 7.5 MG, 1X/DAY
     Route: 048
     Dates: end: 20090316
  4. HALOPERIDOL [Suspect]
     Indication: KORSAKOFF'S SYNDROME
     Dosage: 10 MG, 1X/DAY
     Route: 048
     Dates: end: 20090313

REACTIONS (8)
  - PAIN IN EXTREMITY [None]
  - NAUSEA [None]
  - DYSPNOEA [None]
  - ANGINA PECTORIS [None]
  - HYPONATRAEMIA [None]
  - RESTLESSNESS [None]
  - PRODUCTIVE COUGH [None]
  - AGITATION [None]
